FAERS Safety Report 18473993 (Version 3)
Quarter: 2020Q4

REPORT INFORMATION
  Report Type: Spontaneous
  Country: NL (occurrence: NL)
  Receive Date: 20201106
  Receipt Date: 20201127
  Transmission Date: 20210114
  Serious: Yes (Other)
  Sender: FDA-Public Use
  Company Number: NL-TEVA-2020-NL-1844866

PATIENT
  Age: 81 Year
  Sex: Female
  Weight: 80 kg

DRUGS (3)
  1. ATORVASTATINE TABLET 10MG / BRAND NAME NOT SPECIFIED [Concomitant]
     Dosage: I DO NOT KNOW, THERAPY START DATE; THERAPY END DATE : ASKED BUT UNKNOWN
  2. CLOPIDOGREL TABLET   75MG / BRAND NAME NOT SPECIFIED [Suspect]
     Active Substance: CLOPIDOGREL BISULFATE
     Indication: TRANSIENT ISCHAEMIC ATTACK
     Dosage: 75 MILLIGRAM DAILY; THERAPY END DATE : ASKED BUT UNKNOWN
     Dates: start: 20201002
  3. PERINDOPRIL TABLET 2MG (ERBUMINE) / BRAND NAME NOT SPECIFIED [Concomitant]
     Dosage: I DO NOT KNOW, THERAPY START DATE; THERAPY END DATE : ASKED BUT UNKNOWN

REACTIONS (2)
  - Hemianaesthesia [Not Recovered/Not Resolved]
  - Hypoaesthesia [Not Recovered/Not Resolved]

NARRATIVE: CASE EVENT DATE: 20201005
